FAERS Safety Report 20076691 (Version 1)
Quarter: 2021Q4

REPORT INFORMATION
  Report Type: Spontaneous
  Country: US (occurrence: US)
  Receive Date: 20211116
  Receipt Date: 20211116
  Transmission Date: 20220303
  Serious: No
  Sender: FDA-Public Use
  Company Number: US-SA-SAC20211115000235

PATIENT
  Age: 63 Year
  Sex: Female
  Weight: 81.19 kg

DRUGS (14)
  1. DUPIXENT [Suspect]
     Active Substance: DUPILUMAB
     Indication: Idiopathic urticaria
     Dosage: 300 MG, QOW
     Route: 058
  2. DUPIXENT [Suspect]
     Active Substance: DUPILUMAB
     Indication: Illness
  3. DUPIXENT [Suspect]
     Active Substance: DUPILUMAB
     Indication: Rash
  4. PREDNISONE [Concomitant]
     Active Substance: PREDNISONE
  5. PLAQUENIL [Concomitant]
     Active Substance: HYDROXYCHLOROQUINE SULFATE
  6. CELECOXIB [Concomitant]
     Active Substance: CELECOXIB
     Route: 058
  7. CITALOPRAM [Concomitant]
     Active Substance: CITALOPRAM HYDROBROMIDE
  8. PREGABALIN [Concomitant]
     Active Substance: PREGABALIN
  9. PROPRANOLOL [Concomitant]
     Active Substance: PROPRANOLOL HYDROCHLORIDE
  10. VENLAFAXINE [Concomitant]
     Active Substance: VENLAFAXINE HYDROCHLORIDE
  11. TRAMADOL [Concomitant]
     Active Substance: TRAMADOL
  12. METRONIDAZOLE [Concomitant]
     Active Substance: METRONIDAZOLE
  13. TIZANIDINE [Concomitant]
     Active Substance: TIZANIDINE
  14. CLOBETASOL PROPIONATE [Concomitant]
     Active Substance: CLOBETASOL PROPIONATE

REACTIONS (3)
  - White blood cell disorder [Unknown]
  - Skin burning sensation [Unknown]
  - Product use in unapproved indication [Unknown]
